FAERS Safety Report 12492004 (Version 1)
Quarter: 2016Q2

REPORT INFORMATION
  Report Type: Spontaneous
  Country: US (occurrence: None)
  Receive Date: 20160622
  Receipt Date: 20160622
  Transmission Date: 20160815
  Serious: Yes (Other)
  Sender: FDA-Public Use
  Company Number: None

PATIENT
  Age: 70 Year
  Sex: Female

DRUGS (2)
  1. VYTORIN [Concomitant]
     Active Substance: EZETIMIBE\SIMVASTATIN
  2. BOTOX [Suspect]
     Active Substance: ONABOTULINUMTOXINA
     Indication: MICTURITION URGENCY
     Route: 067
     Dates: start: 20160411, end: 20160411

REACTIONS (5)
  - Urinary incontinence [None]
  - Micturition urgency [None]
  - Pollakiuria [None]
  - Condition aggravated [None]
  - Urinary retention [None]

NARRATIVE: CASE EVENT DATE: 20160411
